FAERS Safety Report 12248468 (Version 1)
Quarter: 2016Q2

REPORT INFORMATION
  Report Type: Spontaneous
  Country: US (occurrence: US)
  Receive Date: 20160408
  Receipt Date: 20160408
  Transmission Date: 20160815
  Serious: No
  Sender: FDA-Public Use
  Company Number: US-BAYER-2016-065752

PATIENT
  Age: 63 Year
  Sex: Female
  Weight: 42.17 kg

DRUGS (4)
  1. ALEVE [Suspect]
     Active Substance: NAPROXEN SODIUM
     Indication: SCIATICA
     Dosage: 2 DF, BID (SHE TAKES 2 TABLETS IN THE MORNING AND 2 TABLETS BEFORE BED)
     Route: 048
     Dates: start: 2005
  2. ALEVE [Suspect]
     Active Substance: NAPROXEN SODIUM
     Indication: SCIATICA
     Dosage: 3 DF, UNK (2 TABLETS IN THE MORNING AND 1 TABLET AT NIGHT)
  3. CALTRATE + D [CALCIUM CARBONATE,COLECALCIFEROL] [Concomitant]
  4. CENTRUM [Concomitant]
     Active Substance: VITAMINS

REACTIONS (1)
  - Product use issue [None]

NARRATIVE: CASE EVENT DATE: 2005
